FAERS Safety Report 7484179-3 (Version None)
Quarter: 2011Q2

REPORT INFORMATION
  Report Type: 
  Country: None (occurrence: None)
  Receive Date: 20110513
  Receipt Date: 20110513
  Transmission Date: 20111010
  Serious: Yes (Other)
  Sender: FDA-Public Use
  Company Number: None

PATIENT
  Sex: Female
  Weight: 93.2595 kg

DRUGS (1)
  1. ATIVAN [Suspect]
     Indication: ANXIETY
     Dosage: 1MG ONE PILL TID ORAL
     Route: 048
     Dates: start: 19901201, end: 20000101

REACTIONS (1)
  - PALPITATIONS [None]
